FAERS Safety Report 8082249-2 (Version None)
Quarter: 2012Q1

REPORT INFORMATION
  Report Type: 
  Country: None (occurrence: None)
  Receive Date: 20120127
  Receipt Date: 20110224
  Transmission Date: 20120608
  Serious: No
  Sender: FDA-Public Use
  Company Number: US-ABBOTT-11P-163-0708279-00

PATIENT
  Sex: Female
  Weight: 97.61 kg

DRUGS (15)
  1. HUMIRA [Suspect]
     Indication: OSTEOARTHRITIS
  2. ESTRACE [Concomitant]
     Indication: PRODUCT USED FOR UNKNOWN INDICATION
  3. HUMIRA [Suspect]
     Indication: RHEUMATOID ARTHRITIS
  4. HUMIRA [Suspect]
     Indication: SPINAL COLUMN STENOSIS
  5. CUVAR [Concomitant]
     Indication: PRODUCT USED FOR UNKNOWN INDICATION
     Dosage: DAILY
  6. CLINORIL [Concomitant]
     Indication: PRODUCT USED FOR UNKNOWN INDICATION
  7. CELEXA [Concomitant]
     Indication: PRODUCT USED FOR UNKNOWN INDICATION
  8. HUMIRA [Suspect]
     Indication: PSORIATIC ARTHROPATHY
     Route: 058
     Dates: start: 20100901, end: 20110210
  9. ALLEGRA [Concomitant]
     Indication: PRODUCT USED FOR UNKNOWN INDICATION
     Dosage: DAILY
     Route: 048
  10. METHOTREXATE [Concomitant]
     Indication: PRODUCT USED FOR UNKNOWN INDICATION
  11. ASTELIN [Concomitant]
     Indication: HYPERSENSITIVITY
  12. GUAIFENESIN [Concomitant]
     Indication: INCREASED VISCOSITY OF BRONCHIAL SECRETION
     Dosage: PRN
  13. ZYRTEC [Concomitant]
     Indication: HYPERSENSITIVITY
     Dosage: DAILY
  14. PEPCID [Concomitant]
     Indication: PRODUCT USED FOR UNKNOWN INDICATION
  15. FLONASE [Concomitant]
     Indication: HYPERSENSITIVITY

REACTIONS (6)
  - INJECTION SITE REACTION [None]
  - LOWER RESPIRATORY TRACT INFECTION [None]
  - WHEEZING [None]
  - SINUS CONGESTION [None]
  - DYSPHONIA [None]
  - COUGH [None]
